FAERS Safety Report 7665915 (Version 2)
Quarter: 2013Q2

REPORT INFORMATION
  Report Type: Spontaneous
  Country: US (occurrence: US)
  Receive Date: 20101112
  Receipt Date: 20130618
  Transmission Date: 20140414
  Serious: Yes (Other)
  Sender: FDA-Public Use
  Company Number: US-ROCHE-718964

PATIENT
  Age: 20 Year
  Sex: Male
  Weight: 83.9 kg

DRUGS (2)
  1. ACCUTANE [Suspect]
     Indication: ACNE
     Route: 048
     Dates: start: 19920221, end: 199208
  2. TCN [Concomitant]
     Indication: ACNE

REACTIONS (8)
  - Crohn^s disease [Unknown]
  - Gastrointestinal injury [Unknown]
  - Inflammatory bowel disease [Unknown]
  - Anal fissure [Unknown]
  - Blood triglycerides increased [Unknown]
  - Conjunctival irritation [Unknown]
  - Chapped lips [Unknown]
  - Oral disorder [Unknown]
